FAERS Safety Report 16472704 (Version 1)
Quarter: 2019Q2

REPORT INFORMATION
  Report Type: Spontaneous
  Country: CZ (occurrence: CZ)
  Receive Date: 20190625
  Receipt Date: 20190625
  Transmission Date: 20190711
  Serious: Yes (Other)
  Sender: FDA-Public Use
  Company Number: CZ-TEVA-2019-CZ-1068073

PATIENT
  Age: 74 Year
  Sex: Female

DRUGS (7)
  1. TERBINAFIN ACTAVIS 250 MG [Suspect]
     Active Substance: TERBINAFINE
     Dosage: 1 DOSE 250 MG
  2. CALCICHEW [Concomitant]
     Active Substance: CALCIUM CARBONATE
  3. TRITACE [Concomitant]
     Active Substance: RAMIPRIL
  4. LEXAURIN [Concomitant]
     Active Substance: BROMAZEPAM
  5. ZOLPIDEM [Concomitant]
     Active Substance: ZOLPIDEM\ZOLPIDEM TARTRATE
  6. VIGANTOL [Concomitant]
  7. BONVIVA [Concomitant]
     Active Substance: IBANDRONATE SODIUM

REACTIONS (1)
  - Hypogeusia [Not Recovered/Not Resolved]

NARRATIVE: CASE EVENT DATE: 201901
